FAERS Safety Report 6818114-5 (Version None)
Quarter: 2010Q3

REPORT INFORMATION
  Report Type: 
  Country: None (occurrence: None)
  Receive Date: 20100706
  Receipt Date: 20100624
  Transmission Date: 20110219
  Serious: Yes (Other)
  Sender: FDA-Public Use
  Company Number: US-PFIZER INC-2010079008

PATIENT
  Sex: Female

DRUGS (2)
  1. METHYLPREDNISOLONE ACETATE [Suspect]
     Indication: BACK PAIN
     Dosage: ^80M^, SINGLE
     Route: 030
     Dates: start: 20091217, end: 20091217
  2. KETOROLAC TROMETHAMINE [Suspect]
     Indication: BACK PAIN
     Dosage: 4 UNITS, SINGLE
     Route: 030
     Dates: start: 20091217, end: 20091217

REACTIONS (6)
  - ARTHRALGIA [None]
  - BACK PAIN [None]
  - INJECTION SITE HAEMATOMA [None]
  - INJECTION SITE PAIN [None]
  - LOCALISED OEDEMA [None]
  - TREATMENT FAILURE [None]
